FAERS Safety Report 18507311 (Version 1)
Quarter: 2020Q4

REPORT INFORMATION
  Report Type: Report from Study
  Country: US (occurrence: US)
  Receive Date: 20201116
  Receipt Date: 20201116
  Transmission Date: 20210114
  Serious: Yes (Death, Hospitalization, Other)
  Sender: FDA-Public Use
  Company Number: US-PFIZER INC-2020448783

PATIENT
  Age: 83 Year
  Sex: Male

DRUGS (2)
  1. CELEBREX [Suspect]
     Active Substance: CELECOXIB
     Dosage: UNK
  2. LEVEMIR [Suspect]
     Active Substance: INSULIN DETEMIR
     Dosage: 48 IU, 1X/DAY
     Route: 058

REACTIONS (12)
  - Hypertension [Unknown]
  - Condition aggravated [Unknown]
  - Cerebral haemorrhage [Unknown]
  - Weight decreased [Unknown]
  - Renal failure [Fatal]
  - Chronic obstructive pulmonary disease [Unknown]
  - Blood glucose abnormal [Unknown]
  - Chronic kidney disease [Unknown]
  - Fall [Recovered/Resolved]
  - Blood glucose decreased [Unknown]
  - Dementia [Fatal]
  - Hypophagia [Unknown]

NARRATIVE: CASE EVENT DATE: 2020
